FAERS Safety Report 25865131 (Version 1)
Quarter: 2025Q3

REPORT INFORMATION
  Report Type: Spontaneous
  Country: US (occurrence: None)
  Receive Date: 20250930
  Receipt Date: 20250930
  Transmission Date: 20251021
  Serious: Yes (Hospitalization)
  Sender: FDA-CTU
  Company Number: None

PATIENT
  Age: 55 Year
  Sex: Female

DRUGS (5)
  1. GAMMAGARD LIQUID [Suspect]
     Active Substance: HUMAN IMMUNOGLOBULIN G
     Indication: IgG deficiency
     Route: 042
     Dates: start: 20210613
  2. GAMMAGARD LIQUID [Suspect]
     Active Substance: HUMAN IMMUNOGLOBULIN G
     Indication: IgG deficiency
     Route: 042
     Dates: start: 20210613
  3. NORMAL SALINE FLUSH (5ML) [Concomitant]
  4. DIPHENHYDRAMINE (ALLERGY ) [Concomitant]
  5. ACETAMINOPHEN XS [Concomitant]

REACTIONS (5)
  - Epiglottitis [None]
  - Dyspnoea [None]
  - Pyelonephritis acute [None]
  - Viral upper respiratory tract infection [None]
  - Cough [None]

NARRATIVE: CASE EVENT DATE: 20250603
